FAERS Safety Report 4828941-1 (Version None)
Quarter: 2005Q4

REPORT INFORMATION
  Report Type: 
  Country: None (occurrence: None)
  Receive Date: 20051014
  Receipt Date: 20050712
  Transmission Date: 20060501
  Serious: No
  Sender: FDA-Public Use
  Company Number: 2005SP001870

PATIENT
  Age: 73 Year
  Sex: Female

DRUGS (7)
  1. LUNESTA [Suspect]
     Indication: INSOMNIA
     Dosage: 2 MG;HS;ORAL
     Route: 048
     Dates: start: 20050706, end: 20050706
  2. COZAAR [Concomitant]
  3. ESTROGEN NOS [Concomitant]
  4. LIPITOR [Concomitant]
  5. LISINOPRIL [Concomitant]
  6. CLONIDINE [Concomitant]
  7. METOPROLOL [Concomitant]

REACTIONS (4)
  - ABNORMAL DREAMS [None]
  - DRUG INEFFECTIVE [None]
  - HOT FLUSH [None]
  - MIDDLE INSOMNIA [None]
